FAERS Safety Report 8202783-1 (Version None)
Quarter: 2012Q1

REPORT INFORMATION
  Report Type: 
  Country: None (occurrence: None)
  Receive Date: 20120312
  Receipt Date: 20120312
  Transmission Date: 20120608
  Serious: Yes (Other)
  Sender: FDA-Public Use
  Company Number: None

PATIENT
  Age: 64 Year
  Sex: Female

DRUGS (2)
  1. EYLEA [Concomitant]
     Dosage: 1
     Route: 031
     Dates: start: 20120227, end: 20120227
  2. EYLEA [Suspect]
     Indication: AGE-RELATED MACULAR DEGENERATION
     Route: 031
     Dates: start: 20120227, end: 20120227

REACTIONS (3)
  - VISION BLURRED [None]
  - UVEITIS [None]
  - ANTERIOR CHAMBER CELL [None]
